FAERS Safety Report 13519179 (Version 2)
Quarter: 2017Q2

REPORT INFORMATION
  Report Type: Spontaneous
  Country: US (occurrence: US)
  Receive Date: 20170505
  Receipt Date: 20170524
  Transmission Date: 20170830
  Serious: Yes (Other)
  Sender: FDA-Public Use
  Company Number: US-TEVA-764687ACC

PATIENT
  Age: 25 Year
  Sex: Female
  Weight: 49.49 kg

DRUGS (1)
  1. PARAGARD T 380A [Suspect]
     Active Substance: COPPER
     Indication: CONTRACEPTION
     Dates: start: 20170414, end: 20170421

REACTIONS (2)
  - Device dislocation [Recovered/Resolved]
  - Nausea [Recovered/Resolved]

NARRATIVE: CASE EVENT DATE: 20170420
